FAERS Safety Report 18804531 (Version 2)
Quarter: 2021Q1

REPORT INFORMATION
  Report Type: Spontaneous
  Country: TR (occurrence: TR)
  Receive Date: 20210129
  Receipt Date: 20210211
  Transmission Date: 20210419
  Serious: Yes (Death, Other)
  Sender: FDA-Public Use
  Company Number: TR-SUN PHARMACEUTICAL INDUSTRIES LTD-2021RR-277942

PATIENT
  Age: 70 Year
  Sex: Female

DRUGS (6)
  1. KOCAK 100 MG/10 ML IV/IM [CALCIUM FOLINATE] [Suspect]
     Active Substance: LEUCOVORIN CALCIUM
     Indication: PRODUCT USED FOR UNKNOWN INDICATION
     Dosage: 15 MILLIGRAM/SQ. METER, QID
     Route: 065
  2. METHOTREXATE KOCAK 500 MG/20ML [Suspect]
     Active Substance: METHOTREXATE
     Indication: BING-NEEL SYNDROME
     Dosage: 3 GRAM PER SQUARE METRE, UNK
     Route: 065
  3. RITUXIMAB. [Suspect]
     Active Substance: RITUXIMAB
     Indication: WALDENSTROM^S MACROGLOBULINAEMIA
     Dosage: 8 CYCLES OF R?CVP, UNK
     Route: 065
  4. PREDNISOLONE. [Suspect]
     Active Substance: PREDNISOLONE
     Indication: WALDENSTROM^S MACROGLOBULINAEMIA
     Dosage: 8 CYCLES OF R?CVP, UNK
     Route: 065
  5. VINCRISTINE [Suspect]
     Active Substance: VINCRISTINE
     Indication: WALDENSTROM^S MACROGLOBULINAEMIA
     Dosage: 8 CYCLES OF R?CVP, UNK
     Route: 065
  6. CYCLOPHOSPHAMIDE. [Suspect]
     Active Substance: CYCLOPHOSPHAMIDE
     Indication: WALDENSTROM^S MACROGLOBULINAEMIA
     Dosage: 8 CYCLES OF R?CVP, UNK
     Route: 065

REACTIONS (9)
  - Nausea [Unknown]
  - Therapy partial responder [Unknown]
  - Pancytopenia [Recovered/Resolved]
  - Vomiting [Unknown]
  - Mucosal inflammation [Unknown]
  - Leukopenia [Unknown]
  - Febrile neutropenia [Fatal]
  - Anaemia [Unknown]
  - Thrombocytopenia [Unknown]
